FAERS Safety Report 18250186 (Version 5)
Quarter: 2021Q1

REPORT INFORMATION
  Report Type: Report from Study
  Country: US (occurrence: US)
  Receive Date: 20200910
  Receipt Date: 20210119
  Transmission Date: 20210419
  Serious: Yes (Hospitalization)
  Sender: FDA-Public Use
  Company Number: NVSC2020US243897

PATIENT
  Age: 47 Year
  Sex: Female

DRUGS (1)
  1. ADAKVEO [Suspect]
     Active Substance: CRIZANLIZUMAB-TMCA
     Indication: PRODUCT USED FOR UNKNOWN INDICATION
     Dosage: UNK, QMO
     Route: 042
     Dates: start: 20200826

REACTIONS (3)
  - Ill-defined disorder [Recovering/Resolving]
  - Bowel movement irregularity [Unknown]
  - Pain [Unknown]

NARRATIVE: CASE EVENT DATE: 20200826
